FAERS Safety Report 9818795 (Version 1)
Quarter: 2014Q1

REPORT INFORMATION
  Report Type: Spontaneous
  Country: US (occurrence: None)
  Receive Date: 20140114
  Receipt Date: 20140114
  Transmission Date: 20141002
  Serious: Yes (Other)
  Sender: FDA-Public Use
  Company Number: None

PATIENT
  Age: 77 Year
  Sex: Female
  Weight: 65.32 kg

DRUGS (22)
  1. OLANZAPINE [Suspect]
     Indication: ABNORMAL BEHAVIOUR
     Route: 030
     Dates: start: 20140103, end: 20140113
  2. RISPERIDONE [Concomitant]
  3. OLANZAPINE [Concomitant]
  4. LORAZEPAM [Concomitant]
  5. VITMAIN D3 [Concomitant]
  6. OMEGA 3 [Concomitant]
  7. LITHIUM CARBONATE [Concomitant]
  8. GLIMEPIRIDE [Concomitant]
  9. METOCLOPRAMIDE [Concomitant]
  10. METFORMIN [Concomitant]
  11. GEMFIBROZIL [Concomitant]
  12. CARVEDILOL [Concomitant]
  13. TRAZODONE [Concomitant]
  14. MELATONIN [Concomitant]
  15. ESCITALPRAM [Concomitant]
  16. DIGOXIN [Concomitant]
  17. CALCIUM CARBONATE [Concomitant]
  18. ALENDRONATE [Concomitant]
  19. QUETIPAINE [Concomitant]
  20. DOCUSATE SODIUM [Concomitant]
  21. LOVASTATIN [Concomitant]
  22. ASPIRIN [Concomitant]

REACTIONS (1)
  - Drug ineffective [None]
